FAERS Safety Report 8797412 (Version 2)
Quarter: 2013Q1

REPORT INFORMATION
  Report Type: Spontaneous
  Country: DE (occurrence: DE)
  Receive Date: 20120919
  Receipt Date: 20130110
  Transmission Date: 20140127
  Serious: Yes (Hospitalization, Other)
  Sender: FDA-Public Use
  Company Number: DE-ROCHE-1128854

PATIENT
  Sex: Male
  Weight: 73 kg

DRUGS (1)
  1. RIVOTRIL [Suspect]
     Indication: RAPID EYE MOVEMENTS SLEEP ABNORMAL
     Route: 048
     Dates: start: 20020522

REACTIONS (9)
  - Laryngeal obstruction [Unknown]
  - Dyspnoea [Unknown]
  - Laryngitis [Unknown]
  - Hyponatraemia [Unknown]
  - Hyperthyroidism [Unknown]
  - Anaemia [Unknown]
  - Bronchitis [Unknown]
  - Respiratory tract infection [Unknown]
  - Urosepsis [Recovered/Resolved]
